FAERS Safety Report 9207182 (Version 4)
Quarter: 2014Q3

REPORT INFORMATION
  Report Type: Spontaneous
  Country: US (occurrence: US)
  Receive Date: 20130403
  Receipt Date: 20140919
  Transmission Date: 20150326
  Serious: Yes (Life-Threatening, Hospitalization, Congenital Anomaly, Other)
  Sender: FDA-Public Use
  Company Number: US-PFIZER INC-2013104195

PATIENT
  Sex: Female
  Weight: 1.1 kg

DRUGS (12)
  1. EFFEXOR [Suspect]
     Active Substance: VENLAFAXINE HYDROCHLORIDE
     Indication: DEPRESSION
     Dosage: UNK
     Route: 064
     Dates: start: 20060215
  2. OFLOXACIN. [Concomitant]
     Active Substance: OFLOXACIN
     Dosage: UNK
     Route: 064
  3. EFFEXOR [Suspect]
     Active Substance: VENLAFAXINE HYDROCHLORIDE
     Indication: ANXIETY
     Dosage: 325 MG, DAILY
     Route: 064
     Dates: start: 200804
  4. EFFEXOR XR [Concomitant]
     Active Substance: VENLAFAXINE HYDROCHLORIDE
     Dosage: 75 MG, 3X/DAY
     Route: 064
  5. CLOMIFENE CITRATE [Concomitant]
     Active Substance: CLOMIPHENE
     Dosage: UNK
     Route: 064
  6. BETAMETHASONE [Concomitant]
     Active Substance: BETAMETHASONE
     Dosage: UNK
     Route: 064
  7. PRENATAL VITAMINS [Concomitant]
     Active Substance: VITAMINS
     Dosage: UNK
     Route: 064
  8. PINDOLOL. [Concomitant]
     Active Substance: PINDOLOL
     Dosage: UNK
     Route: 064
  9. IBUPROFEN. [Concomitant]
     Active Substance: IBUPROFEN
     Dosage: UNK
     Route: 064
  10. EFFEXOR XR [Concomitant]
     Active Substance: VENLAFAXINE HYDROCHLORIDE
     Dosage: 75 MG, UNK
     Route: 064
     Dates: start: 20080214
  11. AMPICILLIN [Concomitant]
     Active Substance: AMPICILLIN
     Dosage: UNK
     Route: 064
  12. INDOCIN [Concomitant]
     Active Substance: INDOMETHACIN\INDOMETHACIN SODIUM
     Dosage: UNK
     Route: 064

REACTIONS (5)
  - Patent ductus arteriosus [Recovered/Resolved]
  - Maternal exposure during pregnancy [Unknown]
  - Pulmonary valve stenosis congenital [Unknown]
  - Ventricular septal defect [Unknown]
  - Premature baby [Unknown]

NARRATIVE: CASE EVENT DATE: 20080422
